FAERS Safety Report 4339039-3 (Version None)
Quarter: 2004Q2

REPORT INFORMATION
  Report Type: 
  Country: None (occurrence: None)
  Receive Date: 20040412
  Receipt Date: 20040317
  Transmission Date: 20050107
  Serious: Yes (Death)
  Sender: FDA-Public Use
  Company Number: 7673

PATIENT
  Age: 82 Year
  Sex: Female

DRUGS (19)
  1. METHOTREXATE [Suspect]
     Indication: RHEUMATOID ARTHRITIS
     Dosage: 25 MG WEEKLY SC
     Route: 058
     Dates: start: 20000316, end: 20020301
  2. PLAQUENIL [Concomitant]
  3. ARAVA [Concomitant]
  4. LEVOTHYROXINE SODIUM [Concomitant]
  5. ACCUPRIL [Concomitant]
  6. SULAR [Concomitant]
  7. CELEBREX [Concomitant]
  8. FOLIC ACID [Concomitant]
  9. PREVACID [Concomitant]
  10. IMODIUM [Concomitant]
  11. MICRONASE [Concomitant]
  12. DOCUSATE [Concomitant]
  13. FLONASE [Concomitant]
  14. MACROBID [Concomitant]
  15. DARVOCET-N 100 [Concomitant]
  16. TYLENOL (CAPLET) [Concomitant]
  17. PREDNISONE [Concomitant]
  18. CLARITIN-D [Concomitant]
  19. VITAMIN B-12 [Concomitant]

REACTIONS (9)
  - BRONCHOPNEUMONIA [None]
  - CHEST DISCOMFORT [None]
  - COMA [None]
  - DIZZINESS [None]
  - ELECTROCARDIOGRAM CHANGE [None]
  - HYPOXIA [None]
  - PNEUMONITIS [None]
  - PULMONARY FIBROSIS [None]
  - RESPIRATORY FAILURE [None]
